FAERS Safety Report 9605258 (Version 1)
Quarter: 2013Q4

REPORT INFORMATION
  Report Type: Spontaneous
  Country: FR (occurrence: FR)
  Receive Date: 20131008
  Receipt Date: 20131008
  Transmission Date: 20140711
  Serious: Yes (Hospitalization)
  Sender: FDA-Public Use
  Company Number: FR-GLAXOSMITHKLINE-B0926452A

PATIENT
  Age: 7 Year
  Sex: Female
  Weight: 24 kg

DRUGS (1)
  1. ZOPHREN IV [Suspect]
     Indication: PROCEDURAL VOMITING
     Dosage: 1.2ML SINGLE DOSE
     Route: 042
     Dates: start: 20130823, end: 20130823

REACTIONS (2)
  - Lethargy [Recovered/Resolved]
  - Respiratory disorder [Recovered/Resolved]
